FAERS Safety Report 19566349 (Version 1)
Quarter: 2021Q3

REPORT INFORMATION
  Report Type: Spontaneous
  Country: CN (occurrence: CN)
  Receive Date: 20210714
  Receipt Date: 20210714
  Transmission Date: 20211014
  Serious: Yes (Hospitalization, Other)
  Sender: FDA-Public Use
  Company Number: CN-PFIZER INC-2021815885

PATIENT
  Age: 74 Year
  Sex: Male
  Weight: 65 kg

DRUGS (6)
  1. SUFENTANIL CITRATE. [Suspect]
     Active Substance: SUFENTANIL CITRATE
     Indication: ARTERIOSCLEROSIS CORONARY ARTERY
     Dosage: 50 UG, BID, VIA PUMP INJECTION
     Dates: start: 20210617, end: 20210620
  2. SODIUM CHLORIDE. [Concomitant]
     Active Substance: SODIUM CHLORIDE
     Indication: ARTERIOSCLEROSIS CORONARY ARTERY
     Dosage: 50 ML, 2X/DAY
     Dates: start: 20210617, end: 20210620
  3. LI YUE XI [MIDAZOLAM] [Suspect]
     Active Substance: MIDAZOLAM
     Indication: ARTERIOSCLEROSIS CORONARY ARTERY
     Dosage: 50 MG, BID, VIA PUMP INJECTION
     Dates: start: 20210617, end: 20210620
  4. VORICONAZOLE. [Suspect]
     Active Substance: VORICONAZOLE
     Indication: ARTERIOSCLEROSIS CORONARY ARTERY
     Dosage: 200 MG, TWICE A DAY (BID)
     Route: 041
     Dates: start: 20210617, end: 20210620
  5. SODIUM CHLORIDE. [Concomitant]
     Active Substance: SODIUM CHLORIDE
     Indication: ARTERIOSCLEROSIS CORONARY ARTERY
     Dosage: 100 ML, 2X/DAY
     Route: 041
     Dates: start: 20210617, end: 20210620
  6. SODIUM CHLORIDE. [Concomitant]
     Active Substance: SODIUM CHLORIDE
     Dosage: 50 ML, 2X/DAY
     Dates: start: 20210617, end: 20210620

REACTIONS (4)
  - Renal failure [Unknown]
  - Off label use [Unknown]
  - Delayed recovery from anaesthesia [Recovered/Resolved]
  - Sedation [Unknown]

NARRATIVE: CASE EVENT DATE: 202106
